FAERS Safety Report 14581246 (Version 1)
Quarter: 2018Q1

REPORT INFORMATION
  Report Type: Report from Study
  Country: US (occurrence: US)
  Receive Date: 20180228
  Receipt Date: 20180228
  Transmission Date: 20180509
  Serious: Yes (Other)
  Sender: FDA-Public Use
  Company Number: US-TESARO, INC-US-2018TSO00918

PATIENT

DRUGS (1)
  1. ZEJULA [Suspect]
     Active Substance: NIRAPARIB
     Indication: OVARIAN CANCER
     Dosage: 300 MG, QD
     Route: 048
     Dates: start: 20170711

REACTIONS (5)
  - Foot fracture [Not Recovered/Not Resolved]
  - Decreased activity [Unknown]
  - Constipation [Not Recovered/Not Resolved]
  - Emotional distress [Unknown]
  - Red blood cell count decreased [Not Recovered/Not Resolved]
